FAERS Safety Report 7230879-X (Version None)
Quarter: 2011Q1

REPORT INFORMATION
  Report Type: 
  Country: None (occurrence: None)
  Receive Date: 20110118
  Receipt Date: 20110110
  Transmission Date: 20110831
  Serious: Yes (Hospitalization, Other)
  Sender: FDA-Public Use
  Company Number: BR-ROCHE-701963

PATIENT
  Sex: Female
  Weight: 69 kg

DRUGS (10)
  1. METICORTEN [Concomitant]
  2. CALTRATE [Concomitant]
     Route: 048
  3. CEFTRIAXONE SODIUM [Suspect]
     Route: 065
  4. AMLODIPINE [Concomitant]
  5. JANUMET [Concomitant]
     Route: 048
  6. SYNTHROID [Concomitant]
     Route: 048
  7. TOCILIZUMAB [Suspect]
     Indication: RHEUMATOID ARTHRITIS
     Route: 042
     Dates: start: 20091118, end: 20101201
  8. TOLREST [Concomitant]
     Route: 048
  9. ASPIRIN [Concomitant]
  10. ABLOK PLUS [Concomitant]
     Dosage: STRENGTH: 50-125 MG, DRUG NAME: ABLOCK PLUS
     Route: 048

REACTIONS (5)
  - HYPERSENSITIVITY [None]
  - VOMITING [None]
  - SPINAL OPERATION [None]
  - DIARRHOEA [None]
  - GAIT DISTURBANCE [None]
